FAERS Safety Report 10872387 (Version 2)
Quarter: 2015Q1

REPORT INFORMATION
  Report Type: Report from Study
  Country: US (occurrence: US)
  Receive Date: 20150226
  Receipt Date: 20150324
  Transmission Date: 20150721
  Serious: Yes (Other)
  Sender: FDA-Public Use
  Company Number: PHEH2015US001279

PATIENT
  Age: 66 Year
  Sex: Male
  Weight: 110.9 kg

DRUGS (5)
  1. GLEEVEC [Suspect]
     Active Substance: IMATINIB MESYLATE
     Indication: CHORDOMA
     Dosage: 400 MG, BID
     Route: 048
  2. VITAMIN B12 [Concomitant]
     Active Substance: CYANOCOBALAMIN
     Indication: ANAEMIA MACROCYTIC
     Dosage: UNK UNK, SL QD
     Route: 065
     Dates: start: 20121016
  3. FLOMEX [Concomitant]
     Indication: PROSTATIC DISORDER
     Dosage: 0.4 MG, QD
     Route: 065
     Dates: start: 20120112
  4. FOLIC ACID. [Concomitant]
     Active Substance: FOLIC ACID
     Indication: ANAEMIA MACROCYTIC
     Dosage: 3 DF, QD
     Route: 048
     Dates: start: 20121016
  5. XANAX [Concomitant]
     Active Substance: ALPRAZOLAM
     Indication: ANXIETY
     Dosage: 0.25 MG, QHS
     Route: 065
     Dates: start: 20120112

REACTIONS (11)
  - Mastication disorder [Unknown]
  - Oral pain [Unknown]
  - Pain [Unknown]
  - Recurrent cancer [Unknown]
  - Limb discomfort [Unknown]
  - Haemoglobin decreased [Unknown]
  - Muscular weakness [Unknown]
  - Chordoma [Unknown]
  - Product use issue [Unknown]
  - Musculoskeletal pain [Recovered/Resolved]
  - Discomfort [Unknown]

NARRATIVE: CASE EVENT DATE: 20111026
